FAERS Safety Report 21782858 (Version 1)
Quarter: 2022Q4

REPORT INFORMATION
  Report Type: Report from Study
  Country: US (occurrence: US)
  Receive Date: 20221227
  Receipt Date: 20221227
  Transmission Date: 20230113
  Serious: Yes (Hospitalization)
  Sender: FDA-Public Use
  Company Number: US-ORPHANEU-2022006928

PATIENT

DRUGS (1)
  1. CARBAGLU [Suspect]
     Active Substance: CARGLUMIC ACID
     Indication: Hyperglycinaemia
     Dosage: 900 MILLIGRAM, QID
     Route: 048

REACTIONS (3)
  - Nasopharyngitis [Unknown]
  - Platelet count decreased [Unknown]
  - Vomiting [Unknown]
